FAERS Safety Report 8406675-4 (Version None)
Quarter: 2012Q2

REPORT INFORMATION
  Report Type: 
  Country: None (occurrence: None)
  Receive Date: 20120604
  Receipt Date: 20120525
  Transmission Date: 20120825
  Serious: Yes (Other)
  Sender: FDA-Public Use
  Company Number: GB-ASTELLAS-2012EU003605

PATIENT
  Sex: Male
  Weight: 62 kg

DRUGS (8)
  1. VESICARE [Suspect]
     Dosage: 5 MG, BID
     Route: 048
  2. BISOPROLOL FUMARATE [Concomitant]
     Indication: MYOCARDIAL INFARCTION
     Dosage: 5 MG, BID
     Route: 048
     Dates: start: 20040101
  3. SIMVASTATIN [Concomitant]
     Indication: MYOCARDIAL INFARCTION
     Dosage: 10 MG, UID/QD
     Route: 048
     Dates: start: 20010101
  4. RAMIPRIL [Concomitant]
     Indication: MYOCARDIAL INFARCTION
     Dosage: 10 MG, UID/QD
     Route: 048
     Dates: start: 20010101
  5. ASPIRIN [Concomitant]
     Indication: MYOCARDIAL INFARCTION
     Dosage: 75 MG, UID/QD
     Route: 048
     Dates: start: 20010101
  6. TAMSULOSIN HCL [Suspect]
     Indication: URINARY TRACT DISORDER
     Dosage: 400 MG, UID/QD
     Route: 048
     Dates: start: 20120501, end: 20120515
  7. VESICARE [Suspect]
     Indication: URINARY TRACT DISORDER
     Dosage: UNK MG, BID
     Route: 065
     Dates: start: 20120501
  8. TOLTERODINE TARTRATE [Suspect]
     Indication: URINARY TRACT DISORDER
     Dosage: 4 MG, UID/QD
     Route: 048
     Dates: start: 20111110

REACTIONS (4)
  - CONFUSIONAL STATE [None]
  - SINUS CONGESTION [None]
  - FALL [None]
  - DISORIENTATION [None]
